FAERS Safety Report 7937851-2 (Version None)
Quarter: 2011Q4

REPORT INFORMATION
  Report Type: 
  Country: None (occurrence: None)
  Receive Date: 20111123
  Receipt Date: 20111114
  Transmission Date: 20120403
  Serious: Yes (Life-Threatening)
  Sender: FDA-Public Use
  Company Number: FR-MERCK-1111USA02020

PATIENT
  Age: 69 Year
  Sex: Female

DRUGS (17)
  1. XOLAIR [Suspect]
     Indication: ASTHMA
     Dosage: EVERY 15 DAYS
     Route: 058
     Dates: start: 20080710, end: 20090801
  2. SYMBICORT [Suspect]
     Indication: ASTHMA
     Dosage: 400/12UG/DOSE
     Route: 055
     Dates: start: 20100101
  3. ALDACTONE [Suspect]
     Route: 065
  4. PANTOPRAZOLE SODIUM [Suspect]
     Route: 065
  5. DEDROGYL [Suspect]
     Route: 065
  6. SINGULAIR [Suspect]
     Indication: ASTHMA
     Route: 048
  7. XOLAIR [Suspect]
     Dosage: DOSAGE WAS DECREASED
     Route: 058
     Dates: start: 20090801, end: 20100401
  8. BRICANYL [Suspect]
     Indication: ASTHMA
     Dosage: 6 TIMES DAILY
     Route: 055
     Dates: start: 20080101
  9. UTEPLEX [Suspect]
     Route: 065
  10. ACETAMINOPHEN [Suspect]
     Route: 065
  11. DESLORATADINE [Suspect]
     Route: 065
  12. PREDNISONE TAB [Suspect]
     Indication: ASTHMA
     Route: 048
     Dates: start: 20060101
  13. CACIT VITAMINE D3 [Suspect]
     Route: 065
  14. PROTELOS [Suspect]
     Indication: OSTEOPOROSIS
     Route: 048
     Dates: start: 20100101
  15. XOLAIR [Suspect]
     Dosage: DOSAGE WAS RE-INCREASED
     Route: 058
     Dates: start: 20100401, end: 20100805
  16. ATROVENT [Suspect]
     Indication: ASTHMA
     Route: 055
     Dates: start: 20080101
  17. FENOFIBRATE [Suspect]
     Route: 065

REACTIONS (1)
  - NEOPLASM MALIGNANT [None]
